FAERS Safety Report 5741377-4 (Version None)
Quarter: 2008Q2

REPORT INFORMATION
  Report Type: 
  Country: None (occurrence: None)
  Receive Date: 20080514
  Receipt Date: 20080507
  Transmission Date: 20081010
  Serious: Yes (Death)
  Sender: FDA-Public Use
  Company Number: 2008JP002156

PATIENT
  Age: 42 Year
  Sex: Male

DRUGS (4)
  1. PROGRAF [Suspect]
     Indication: STEM CELL TRANSPLANT
  2. METHYLPREDNISOLONE [Concomitant]
  3. MYCOPHENOLATE MOFETIL [Concomitant]
  4. INFLIXIMAB (INFLIXIMAB) FORMULATION [Concomitant]

REACTIONS (1)
  - INFECTION [None]
